FAERS Safety Report 14123839 (Version 1)
Quarter: 2017Q4

REPORT INFORMATION
  Report Type: Report from Study
  Country: None (occurrence: BR)
  Receive Date: 20171025
  Receipt Date: 20171025
  Transmission Date: 20180321
  Serious: Yes (Other)
  Sender: FDA-Public Use
  Company Number: BR-ABBVIE-17K-020-2137086-00

PATIENT
  Sex: Female

DRUGS (1)
  1. HUMIRA [Suspect]
     Active Substance: ADALIMUMAB
     Indication: PSORIATIC ARTHROPATHY
     Route: 058
     Dates: start: 20150921

REACTIONS (6)
  - Fatigue [Recovering/Resolving]
  - Malaise [Unknown]
  - Aneurysm [Recovering/Resolving]
  - Stress [Unknown]
  - Somnolence [Recovering/Resolving]
  - Pain [Recovering/Resolving]
